FAERS Safety Report 5760447-8 (Version None)
Quarter: 2008Q2

REPORT INFORMATION
  Report Type: 
  Country: None (occurrence: None)
  Receive Date: 20080605
  Receipt Date: 20080527
  Transmission Date: 20081010
  Serious: Yes (Hospitalization)
  Sender: FDA-Public Use
  Company Number: BR-PFIZER INC-2008045530

PATIENT
  Sex: Female
  Weight: 79 kg

DRUGS (6)
  1. DEPO-PROVERA SUSPENSION/INJ [Suspect]
     Indication: OFF LABEL USE
     Dates: start: 20060101, end: 20060101
  2. DEPO-PROVERA SUSPENSION/INJ [Suspect]
     Indication: MENSTRUAL DISCOMFORT
  3. TYLENOL [Concomitant]
     Route: 048
  4. LISADOR [Concomitant]
  5. CYCLOBENZAPRINE HCL [Concomitant]
  6. FELDENE [Concomitant]

REACTIONS (4)
  - ACNE [None]
  - AMENORRHOEA [None]
  - SPINAL DISORDER [None]
  - WEIGHT INCREASED [None]
